FAERS Safety Report 9201312 (Version 4)
Quarter: 2013Q2

REPORT INFORMATION
  Report Type: Spontaneous
  Country: US (occurrence: US)
  Receive Date: 20130401
  Receipt Date: 20130531
  Transmission Date: 20140414
  Serious: Yes (Hospitalization, Other)
  Sender: FDA-Public Use
  Company Number: US-ASTELLAS-2013US003472

PATIENT
  Sex: Male

DRUGS (1)
  1. XTANDI [Suspect]
     Indication: PROSTATE CANCER
     Dosage: 160 MG, UID/QD
     Route: 048
     Dates: start: 20130205

REACTIONS (5)
  - Blood pressure fluctuation [Unknown]
  - Dehydration [Unknown]
  - Dysphagia [Unknown]
  - Hypotension [Recovered/Resolved]
  - Pneumonia aspiration [Unknown]
